FAERS Safety Report 15517117 (Version 1)
Quarter: 2018Q4

REPORT INFORMATION
  Report Type: Report from Study
  Country: IN (occurrence: IN)
  Receive Date: 20181017
  Receipt Date: 20181017
  Transmission Date: 20190205
  Serious: Yes (Other)
  Sender: FDA-Public Use
  Company Number: PHHY2018IN119381

PATIENT
  Age: 60 Year
  Sex: Male
  Weight: 73.5 kg

DRUGS (1)
  1. SIMULECT [Suspect]
     Active Substance: BASILIXIMAB
     Indication: RENAL TRANSPLANT
     Dosage: 20 MG, UNK
     Route: 042
     Dates: start: 20180907, end: 20180912

REACTIONS (7)
  - Blood lactate dehydrogenase increased [Unknown]
  - Delayed graft function [Unknown]
  - Fluid overload [Unknown]
  - Platelet count decreased [Unknown]
  - Oliguria [Unknown]
  - Blood creatinine increased [Unknown]
  - Anaemia [Unknown]

NARRATIVE: CASE EVENT DATE: 20181001
